FAERS Safety Report 7013855-1 (Version None)
Quarter: 2010Q3

REPORT INFORMATION
  Report Type: 
  Country: None (occurrence: None)
  Receive Date: 20100924
  Receipt Date: 20100910
  Transmission Date: 20110219
  Serious: Yes (Other)
  Sender: FDA-Public Use
  Company Number: BE-GENENTECH-303540

PATIENT
  Age: 36 Year
  Sex: Female

DRUGS (1)
  1. XOLAIR [Suspect]
     Indication: HYPERSENSITIVITY
     Dosage: 375 MG, Q2W
     Route: 058
     Dates: start: 20090101, end: 20100601

REACTIONS (5)
  - CYTOLYTIC HEPATITIS [None]
  - DECREASED APPETITE [None]
  - FATIGUE [None]
  - HEPATIC STEATOSIS [None]
  - TRANSAMINASES INCREASED [None]
